FAERS Safety Report 24038529 (Version 2)
Quarter: 2024Q3

REPORT INFORMATION
  Report Type: Spontaneous
  Country: US (occurrence: US)
  Receive Date: 20240702
  Receipt Date: 20240917
  Transmission Date: 20241016
  Serious: No
  Sender: TEVA
  Company Number: US-TEVA-VS-3212800

PATIENT
  Age: 73 Year
  Sex: Female

DRUGS (2)
  1. AJOVY [Suspect]
     Active Substance: FREMANEZUMAB-VFRM
     Indication: Product used for unknown indication
     Dosage: 225 MG / 1.5 ML
     Route: 065
  2. AJOVY [Suspect]
     Active Substance: FREMANEZUMAB-VFRM

REACTIONS (12)
  - Migraine [Unknown]
  - Vomiting [Unknown]
  - Stress [Unknown]
  - Injection site pain [Unknown]
  - Head discomfort [Unknown]
  - Accidental exposure to product [Unknown]
  - Device defective [Unknown]
  - Nausea [Unknown]
  - Device issue [Unknown]
  - Inappropriate schedule of product administration [Unknown]
  - Pain in extremity [Unknown]
  - Injury associated with device [Unknown]

NARRATIVE: CASE EVENT DATE: 20240101
